FAERS Safety Report 4479479-5 (Version None)
Quarter: 2004Q4

REPORT INFORMATION
  Report Type: 
  Country: None (occurrence: None)
  Receive Date: 20041018
  Receipt Date: 20041006
  Transmission Date: 20050328
  Serious: Yes (Other)
  Sender: FDA-Public Use
  Company Number: 2004075893

PATIENT
  Age: 23 Month
  Sex: Female

DRUGS (3)
  1. ZITHROMAX [Suspect]
     Indication: PHARYNGOLARYNGEAL PAIN
     Dosage: 600 MG (1 D) ORAL
     Route: 048
     Dates: start: 20040901, end: 20040901
  2. HEDERA HELIX [Concomitant]
  3. DECONGESTANTS AND ANTIALLERGICS [Concomitant]

REACTIONS (1)
  - HYPOTHERMIA [None]
